FAERS Safety Report 11741605 (Version 1)
Quarter: 2015Q4

REPORT INFORMATION
  Report Type: Spontaneous
  Country: GB (occurrence: GB)
  Receive Date: 20151116
  Receipt Date: 20151116
  Transmission Date: 20160304
  Serious: Yes (Life-Threatening, Other)
  Sender: FDA-Public Use
  Company Number: GB-AJANTA PHARMA USA INC.-1044225

PATIENT
  Age: 88 Year
  Sex: Male

DRUGS (1)
  1. LEVETIRACETAM. [Suspect]
     Active Substance: LEVETIRACETAM
     Indication: SEIZURE

REACTIONS (3)
  - Liver function test abnormal [Recovered/Resolved]
  - Delirium [Recovered/Resolved]
  - Suicidal behaviour [Recovered/Resolved]
